FAERS Safety Report 8308501-0 (Version None)
Quarter: 2012Q2

REPORT INFORMATION
  Report Type: 
  Country: None (occurrence: None)
  Receive Date: 20120424
  Receipt Date: 20110603
  Transmission Date: 20120825
  Serious: No
  Sender: FDA-Public Use
  Company Number: US-BRISTOL-MYERS SQUIBB COMPANY-15803265

PATIENT
  Sex: Female

DRUGS (3)
  1. CARBOPLATIN [Suspect]
     Dosage: UNK-ONG
     Route: 065
  2. TAXOTERE [Suspect]
     Dosage: EVERY CYCLE 1 VIAL
     Route: 041
  3. HERCEPTIN [Suspect]
     Route: 065

REACTIONS (1)
  - RASH GENERALISED [None]
